FAERS Safety Report 14764884 (Version 1)
Quarter: 2018Q2

REPORT INFORMATION
  Report Type: Spontaneous
  Country: FR (occurrence: FR)
  Receive Date: 20180416
  Receipt Date: 20180416
  Transmission Date: 20180711
  Serious: Yes (Other)
  Sender: FDA-Public Use
  Company Number: FR-TEVA-2018-FR-881774

PATIENT
  Age: 69 Year
  Sex: Male
  Weight: 76 kg

DRUGS (2)
  1. CISPLATIN. [Suspect]
     Active Substance: CISPLATIN
     Indication: TONSIL CANCER
     Route: 041
  2. FLUOROURACILE [Suspect]
     Active Substance: FLUOROURACIL
     Indication: TONSIL CANCER
     Route: 041

REACTIONS (1)
  - Acute myeloid leukaemia [Not Recovered/Not Resolved]
